FAERS Safety Report 7498743-9 (Version None)
Quarter: 2011Q2

REPORT INFORMATION
  Report Type: 
  Country: None (occurrence: None)
  Receive Date: 20110524
  Receipt Date: 20110512
  Transmission Date: 20111010
  Serious: Yes (Hospitalization)
  Sender: FDA-Public Use
  Company Number: DE-ELI_LILLY_AND_COMPANY-DE201105003190

PATIENT
  Age: 35 Year
  Sex: Male

DRUGS (2)
  1. CYMBALTA [Suspect]
     Indication: DEPRESSION
  2. ENBREL [Concomitant]
     Indication: ANKYLOSING SPONDYLITIS
     Dosage: UNK
     Dates: start: 20070101

REACTIONS (1)
  - DEPRESSION [None]
